FAERS Safety Report 5874791-7 (Version None)
Quarter: 2008Q3

REPORT INFORMATION
  Report Type: 
  Country: None (occurrence: None)
  Receive Date: 20080909
  Receipt Date: 20080908
  Transmission Date: 20090109
  Serious: Yes (Other)
  Sender: FDA-Public Use
  Company Number: PE-RB-003865-08

PATIENT
  Age: 81 Year
  Sex: Male

DRUGS (3)
  1. TRANSTEC [Suspect]
     Dosage: 1/4 BUPRENORPHINE 35 MCG/H PATCH APPLIED EVERY 3.5 DAYS
     Route: 062
  2. TRANSTEC [Suspect]
     Dosage: 1/2 BUPRENORPHINE 35 MCG/H PATCH APPLIED EVERY 3.5 DAYS
     Route: 062
  3. TRANSTEC [Suspect]
     Dosage: 1/5 BUPRENORPHINE 35 MCG/H PATCH APPLIED EVERY 3.5 DAYS
     Route: 062

REACTIONS (2)
  - HALLUCINATION, VISUAL [None]
  - SOMNOLENCE [None]
